FAERS Safety Report 22150388 (Version 1)
Quarter: 2023Q1

REPORT INFORMATION
  Report Type: Spontaneous
  Country: US (occurrence: US)
  Receive Date: 20230329
  Receipt Date: 20230329
  Transmission Date: 20230417
  Serious: No
  Sender: FDA-Public Use
  Company Number: US-CORIUM, LLC-2023COR000040

PATIENT

DRUGS (1)
  1. ADLARITY [Suspect]
     Active Substance: DONEPEZIL HYDROCHLORIDE
     Indication: Dementia
     Dosage: UNK
     Route: 062
     Dates: start: 20221122, end: 20230117

REACTIONS (3)
  - Application site exfoliation [Unknown]
  - Application site irritation [Unknown]
  - Application site erythema [Recovered/Resolved]
